FAERS Safety Report 4382014-3 (Version None)
Quarter: 2004Q2

REPORT INFORMATION
  Report Type: 
  Country: None (occurrence: None)
  Receive Date: 20040615
  Receipt Date: 20040607
  Transmission Date: 20050107
  Serious: Yes (Hospitalization)
  Sender: FDA-Public Use
  Company Number: FRWYE808407JUN04

PATIENT
  Age: 39 Year
  Sex: Female

DRUGS (4)
  1. LEVONORGESTREL AND ETHINYL ESTRADIOL [Suspect]
     Dosage: 1 TABLET 1X PER 1 DAY ORAL
     Route: 048
     Dates: start: 20040110, end: 20040120
  2. DEROXAT (PAROXETINE HYDROCHORIDE, , 0) [Suspect]
     Dosage: ORAL
     Route: 048
     Dates: start: 20040223
  3. OMEPRAZOLE [Suspect]
     Dosage: ORAL
     Route: 048
     Dates: start: 20040211
  4. TRILEPTAL [Suspect]
     Dosage: ORAL
     Route: 048
     Dates: start: 20040226, end: 20040228

REACTIONS (6)
  - ANTINUCLEAR ANTIBODY POSITIVE [None]
  - ASCITES [None]
  - CHOLESTASIS [None]
  - HEPATIC STEATOSIS [None]
  - HEPATOMEGALY [None]
  - HYPOTENSION [None]
